FAERS Safety Report 4966336-0 (Version None)
Quarter: 2006Q2

REPORT INFORMATION
  Report Type: 
  Country: None (occurrence: None)
  Receive Date: 20060403
  Receipt Date: 20060320
  Transmission Date: 20061013
  Serious: Yes (Hospitalization)
  Sender: FDA-Public Use
  Company Number: 2006038924

PATIENT
  Age: 80 Year
  Sex: Female

DRUGS (4)
  1. NIFEDIPINE [Suspect]
     Indication: CHEST PAIN
     Dosage: 5 MG, ORAL
     Route: 048
  2. NIFEDIPINE [Suspect]
     Indication: HYPERTENSION
     Dosage: 5 MG, ORAL
     Route: 048
  3. NITROGLICERINA                       (GLYCERYL TRINITRATE) [Suspect]
     Indication: CHEST PAIN
  4. NITROGLICERINA                       (GLYCERYL TRINITRATE) [Suspect]
     Indication: HYPERTENSION

REACTIONS (9)
  - ASTHENIA [None]
  - FAECAL INCONTINENCE [None]
  - INADEQUATE ANALGESIA [None]
  - ISCHAEMIC STROKE [None]
  - LACUNAR INFARCTION [None]
  - PAIN [None]
  - PARAESTHESIA [None]
  - SPINAL CORD INFARCTION [None]
  - THERAPEUTIC RESPONSE DECREASED [None]
